FAERS Safety Report 4947156-X (Version None)
Quarter: 2006Q1

REPORT INFORMATION
  Report Type: 
  Country: None (occurrence: None)
  Receive Date: 20060317
  Receipt Date: 20060301
  Transmission Date: 20060701
  Serious: Yes (Death)
  Sender: FDA-Public Use
  Company Number: HK-SANOFI-SYNTHELABO-A01200601619

PATIENT
  Age: 63 Year
  Sex: Male

DRUGS (3)
  1. ELOXATIN [Suspect]
     Indication: COLON CANCER
     Dosage: UNKNOWN
     Route: 042
     Dates: start: 20060101, end: 20060101
  2. FLUOROURACIL [Concomitant]
     Indication: COLON CANCER
     Dosage: UNKNOWN
     Route: 042
  3. LEUCOVORIN CALCIUM [Concomitant]
     Indication: COLON CANCER
     Dosage: UNKNOWN
     Route: 042

REACTIONS (2)
  - ANAPHYLACTIC REACTION [None]
  - PNEUMONIA [None]
